FAERS Safety Report 18926077 (Version 1)
Quarter: 2021Q1

REPORT INFORMATION
  Report Type: Spontaneous
  Country: US (occurrence: US)
  Receive Date: 20210223
  Receipt Date: 20210223
  Transmission Date: 20210420
  Serious: Yes (Hospitalization, Disabling, Other)
  Sender: FDA-Public Use
  Company Number: US-CIPLA LTD.-2021US01124

PATIENT

DRUGS (6)
  1. GABAPENTIN. [Suspect]
     Active Substance: GABAPENTIN
     Indication: NEUROPATHY PERIPHERAL
     Dosage: 2400 MILLIGRAM, QID (TOTAL, 9600 MG DAILY)
     Route: 065
  2. TOPIRAMATE. [Concomitant]
     Active Substance: TOPIRAMATE
     Indication: PRODUCT USED FOR UNKNOWN INDICATION
     Dosage: UNK
     Route: 065
  3. GABAPENTIN. [Suspect]
     Active Substance: GABAPENTIN
     Dosage: 800 MG, TID
     Route: 065
  4. PROPRANOLOL [Concomitant]
     Active Substance: PROPRANOLOL HYDROCHLORIDE
     Indication: PRODUCT USED FOR UNKNOWN INDICATION
     Dosage: UNK
     Route: 065
  5. NORTRIPTYLINE [Concomitant]
     Active Substance: NORTRIPTYLINE
     Indication: PRODUCT USED FOR UNKNOWN INDICATION
     Dosage: UNK
     Route: 065
  6. GABAPENTIN. [Suspect]
     Active Substance: GABAPENTIN
     Dosage: 900 MG, TID
     Route: 065

REACTIONS (14)
  - Muscle spasms [Recovered/Resolved]
  - Diplopia [Recovered/Resolved]
  - Myokymia [Recovered/Resolved]
  - Tremor [Recovered/Resolved]
  - Action tremor [Recovered/Resolved]
  - Prescribed overdose [Recovered/Resolved]
  - Muscle contractions involuntary [Recovered/Resolved]
  - Binocular eye movement disorder [Recovered/Resolved]
  - Pain in extremity [Recovered/Resolved]
  - Myoclonus [Recovered/Resolved]
  - Fall [Recovered/Resolved]
  - Toxicity to various agents [Recovered/Resolved]
  - Walking disability [Recovered/Resolved]
  - Dyskinesia [Recovered/Resolved]
